FAERS Safety Report 4692440-0 (Version None)
Quarter: 2005Q2

REPORT INFORMATION
  Report Type: 
  Country: None (occurrence: None)
  Receive Date: 20050616
  Receipt Date: 20050525
  Transmission Date: 20051028
  Serious: Yes (Other)
  Sender: FDA-Public Use
  Company Number: EWC050443746

PATIENT
  Age: 44 Year
  Sex: Female

DRUGS (7)
  1. CYMBALTA [Suspect]
     Indication: DEPRESSION
     Dosage: 60 MG/1 DAY
     Dates: start: 20050307, end: 20050419
  2. LANSOPRAZOLE [Concomitant]
  3. ELTROXIN       (LEVOTHYROXINE SODIUM) [Concomitant]
  4. MACRODANTIN [Concomitant]
  5. WARFARIN [Concomitant]
  6. MOBIC [Concomitant]
  7. PANADO (PARACETAMOL) [Concomitant]

REACTIONS (2)
  - BLOOD ALBUMIN DECREASED [None]
  - HEPATITIS ACUTE [None]
